FAERS Safety Report 15950132 (Version 2)
Quarter: 2019Q3

REPORT INFORMATION
  Report Type: Report from Study
  Country: US (occurrence: US)
  Receive Date: 20190211
  Receipt Date: 20190711
  Transmission Date: 20191004
  Serious: Yes (Other)
  Sender: FDA-Public Use
  Company Number: PHEH2018US037964

PATIENT
  Sex: Male

DRUGS (2)
  1. CALCIPOTRIENE AND BETAMETHASONE DIPROPIONATE [Concomitant]
     Active Substance: BETAMETHASONE DIPROPIONATE\CALCIPOTRIENE
     Indication: PRODUCT USED FOR UNKNOWN INDICATION
     Dosage: UNK
     Route: 061
  2. COSENTYX [Suspect]
     Active Substance: SECUKINUMAB
     Indication: PSORIASIS
     Dosage: 300 MG, Q4W
     Route: 065
     Dates: start: 20171212, end: 20190506

REACTIONS (6)
  - Staphylococcal infection [Unknown]
  - Fall [Unknown]
  - Rotator cuff syndrome [Unknown]
  - Arthropod bite [Unknown]
  - Tooth infection [Unknown]
  - Benign neoplasm [Unknown]

NARRATIVE: CASE EVENT DATE: 201805
